FAERS Safety Report 6185377-1 (Version None)
Quarter: 2009Q2

REPORT INFORMATION
  Report Type: 
  Country: None (occurrence: None)
  Receive Date: 20090507
  Receipt Date: 20090430
  Transmission Date: 20091009
  Serious: Yes (Life-Threatening, Hospitalization, Other)
  Sender: FDA-Public Use
  Company Number: 2009002568

PATIENT
  Age: 31 Year
  Sex: Female

DRUGS (3)
  1. TRISENOX [Suspect]
     Indication: ACUTE PROMYELOCYTIC LEUKAEMIA
     Dosage: INTRAVENOUS
     Route: 042
     Dates: start: 20090221, end: 20090321
  2. ATRACURIUM BESYLATE [Concomitant]
  3. METILPREDNISONE (METHYLPREDNISOLONE) [Concomitant]

REACTIONS (5)
  - ACUTE PROMYELOCYTIC LEUKAEMIA DIFFERENTIATION SYNDROME [None]
  - CHEST PAIN [None]
  - HYPOTENSION [None]
  - PNEUMONIA [None]
  - RESPIRATORY FAILURE [None]
